FAERS Safety Report 22649889 (Version 1)
Quarter: 2023Q2

REPORT INFORMATION
  Report Type: Spontaneous
  Country: US (occurrence: US)
  Receive Date: 20230628
  Receipt Date: 20230628
  Transmission Date: 20230722
  Serious: No
  Sender: FDA-Public Use
  Company Number: US-BAYER-2023A088403

PATIENT
  Age: 18 Year
  Sex: Female

DRUGS (1)
  1. GADAVIST [Suspect]
     Active Substance: GADOBUTROL
     Indication: Magnetic resonance imaging heart
     Dosage: UNK, ONCE
     Route: 042
     Dates: start: 20230614, end: 20230614

REACTIONS (7)
  - Injection site pain [None]
  - Headache [None]
  - Nausea [None]
  - Peripheral swelling [Not Recovered/Not Resolved]
  - Skin discolouration [None]
  - Productive cough [Recovering/Resolving]
  - Pain in extremity [Recovering/Resolving]

NARRATIVE: CASE EVENT DATE: 20230614
